FAERS Safety Report 8845402 (Version 1)
Quarter: 2012Q4

REPORT INFORMATION
  Report Type: 
  Country: MT (occurrence: MT)
  Receive Date: 20121017
  Receipt Date: 20121017
  Transmission Date: 20130627
  Serious: Yes (Other)
  Sender: FDA-Public Use
  Company Number: MT-ASTRAZENECA-2012SE77351

PATIENT
  Age: 55 Year
  Sex: Female

DRUGS (2)
  1. CRESTOR [Suspect]
     Indication: DYSLIPIDAEMIA
     Route: 048
  2. ANTIHYPERTENSIVE MEDICATION [Concomitant]

REACTIONS (1)
  - Alopecia [Recovered/Resolved]
